FAERS Safety Report 9103349 (Version 1)
Quarter: 2013Q1

REPORT INFORMATION
  Report Type: Spontaneous
  Country: US (occurrence: US)
  Receive Date: 20130219
  Receipt Date: 20130219
  Transmission Date: 20140127
  Serious: Yes (Hospitalization)
  Sender: FDA-Public Use
  Company Number: US-GLAXOSMITHKLINE-A0718188A

PATIENT
  Age: 50 Year
  Sex: Female
  Weight: 101.4 kg

DRUGS (2)
  1. AVANDIA [Suspect]
     Indication: DIABETES MELLITUS
     Dosage: 8MG PER DAY
     Dates: start: 2001, end: 2004
  2. ATENOLOL [Concomitant]

REACTIONS (2)
  - Heart injury [Not Recovered/Not Resolved]
  - Cardiac failure congestive [Unknown]
